FAERS Safety Report 20350788 (Version 1)
Quarter: 2022Q1

REPORT INFORMATION
  Report Type: Spontaneous
  Country: US (occurrence: None)
  Receive Date: 20220117
  Receipt Date: 20220117
  Transmission Date: 20220423
  Serious: Yes (Other)
  Sender: FDA-Public Use
  Company Number: None

PATIENT
  Sex: Female

DRUGS (3)
  1. BRIMONIDINE [Suspect]
     Active Substance: BRIMONIDINE TARTRATE
     Indication: Intraocular pressure increased
     Dosage: TWICE A DAY 2 DROPS ?
     Route: 047
     Dates: start: 20211222, end: 20220112
  2. Ibuprofen CPAP [Concomitant]
  3. Do Terra [Concomitant]

REACTIONS (1)
  - Alopecia [None]
